FAERS Safety Report 17236457 (Version 2)
Quarter: 2020Q1

REPORT INFORMATION
  Report Type: Spontaneous
  Country: US (occurrence: US)
  Receive Date: 20200106
  Receipt Date: 20200108
  Transmission Date: 20200409
  Serious: Yes (Other)
  Sender: FDA-Public Use
  Company Number: US-PFIZER INC-2020000930

PATIENT
  Age: 59 Year
  Sex: Female
  Weight: 63 kg

DRUGS (3)
  1. GABAPENTIN. [Suspect]
     Active Substance: GABAPENTIN
     Indication: SLEEP DISORDER
  2. GABAPENTIN. [Suspect]
     Active Substance: GABAPENTIN
     Indication: SEIZURE
  3. GABAPENTIN. [Suspect]
     Active Substance: GABAPENTIN
     Indication: PAIN
     Dosage: 1200 MG, 1X/DAY [AT NIGHT]
     Route: 048
     Dates: start: 2019, end: 2019

REACTIONS (15)
  - Back pain [Unknown]
  - Intentional product use issue [Unknown]
  - Neuralgia [Unknown]
  - Tremor [Unknown]
  - Condition aggravated [Unknown]
  - Mental disorder [Recovered/Resolved]
  - Discomfort [Unknown]
  - Clostridium difficile infection [Unknown]
  - Drug withdrawal syndrome [Unknown]
  - Pain in extremity [Unknown]
  - Axillary pain [Unknown]
  - Herpes zoster [Unknown]
  - Haematochezia [Unknown]
  - Rash macular [Unknown]
  - Colitis [Unknown]

NARRATIVE: CASE EVENT DATE: 2019
